FAERS Safety Report 4653675-6 (Version None)
Quarter: 2005Q2

REPORT INFORMATION
  Report Type: 
  Country: None (occurrence: None)
  Receive Date: 20050505
  Receipt Date: 20040317
  Transmission Date: 20051028
  Serious: Yes (Other)
  Sender: FDA-Public Use
  Company Number: BE-JNJFOC-20031005793

PATIENT
  Age: 47 Year
  Sex: Female

DRUGS (1)
  1. PROPULSID [Suspect]
     Route: 065
     Dates: start: 20030924, end: 20031022

REACTIONS (5)
  - CONDITION AGGRAVATED [None]
  - DRUG INEFFECTIVE [None]
  - DRY MOUTH [None]
  - DYSPNOEA [None]
  - PALPITATIONS [None]
